FAERS Safety Report 16860675 (Version 1)
Quarter: 2019Q3

REPORT INFORMATION
  Report Type: Spontaneous
  Country: CA (occurrence: CA)
  Receive Date: 20190927
  Receipt Date: 20190927
  Transmission Date: 20191005
  Serious: Yes (Other)
  Sender: FDA-Public Use
  Company Number: CA-CELLTRION INC.-2018CA019376

PATIENT

DRUGS (38)
  1. INFLECTRA [Suspect]
     Active Substance: INFLIXIMAB-DYYB
     Dosage: 5 MG/KG (400 MG) ON WEEK 0, 2, 6 THEN EVERY 8 WEEKS
     Route: 042
     Dates: start: 20180713
  2. INFLECTRA [Suspect]
     Active Substance: INFLIXIMAB-DYYB
     Dosage: 7.5 MG/KG, EVERY 6 WEEKS
     Route: 042
     Dates: start: 20190404, end: 20190404
  3. APO-VALACYCLOVIR [Concomitant]
     Active Substance: VALACYCLOVIR HYDROCHLORIDE
     Dosage: 2 TABLETS TWICE A DAY (FOR 2 DAYS)
     Route: 048
  4. MEZAVANT [Concomitant]
     Active Substance: MESALAMINE
     Dosage: 4 TABLETS (1.2G), 1X/DAY
     Route: 048
  5. AMOXICILLIN [AMOXICILLIN SODIUM] [Concomitant]
     Active Substance: AMOXICILLIN SODIUM
     Dosage: 100 MG, 2X/DAY (2 TABS BID )
  6. INFLECTRA [Suspect]
     Active Substance: INFLIXIMAB-DYYB
     Dosage: 7.5 MG/KG, EVERY 8 WEEKS
     Route: 042
     Dates: start: 20181228, end: 20181228
  7. CORTISONE [Concomitant]
     Active Substance: CORTISONE
     Dosage: UNK (DECREASING DOSE)
     Dates: start: 20180905, end: 20180908
  8. SULFATRIM [Concomitant]
     Active Substance: SULFAMETHOXAZOLE\TRIMETHOPRIM
     Dosage: 800+160 MG, 1 TAB BID (2XDAY) 3 TIMES PER WEEK
  9. APO-PREDNISONE [Concomitant]
     Active Substance: PREDNISONE
     Dosage: 5 MG, DAILY
     Route: 048
  10. SYNTHROID [Concomitant]
     Active Substance: LEVOTHYROXINE SODIUM
     Indication: THYROID DISORDER
     Dosage: 0.1 MG, 1X/DAY
     Route: 048
  11. HYDROMORPHONE [Concomitant]
     Active Substance: HYDROMORPHONE
     Indication: PAIN
     Dosage: 2 DF (4 MG TABLETS), EVERY 4 HOURS PRN (AS NEEDED)
     Dates: start: 20181023
  12. PREDNISONE. [Concomitant]
     Active Substance: PREDNISONE
     Dosage: 10 MG, DAILY (2 TABS DIE )
  13. INFLECTRA [Suspect]
     Active Substance: INFLIXIMAB-DYYB
     Dosage: 7.5 MG/KG, EVERY 6 WEEKS
     Route: 042
     Dates: start: 20190517, end: 20190517
  14. FLOVENT HFA [Concomitant]
     Active Substance: FLUTICASONE PROPIONATE
     Dosage: 1 DF(INHALATION), 2X/DAY (ONE INHALATION EVERY 12 HOURS
     Route: 055
  15. BUSCOPAN [Concomitant]
     Active Substance: BUTYLSCOPOLAMINE BROMIDE
     Dosage: 2 TABLETS (10 MG)  PRN (AS NEEDED)
     Route: 048
  16. INFLECTRA [Suspect]
     Active Substance: INFLIXIMAB-DYYB
     Dosage: 7.5 MG/KG, EVERY 8 WEEKS
     Route: 042
     Dates: start: 20190222, end: 20190222
  17. APO-VALACYCLOVIR [Concomitant]
     Active Substance: VALACYCLOVIR HYDROCHLORIDE
     Dosage: 1 TABLET 2X/DAY (FOR 7 DAYS)
     Route: 048
  18. HYDROMORPH CONTIN [Concomitant]
     Active Substance: HYDROMORPHONE
     Indication: PAIN
     Dosage: 2 DF (3 MG CAPSULES), EVERY 4 HOURS PRN (AS NEEDED)
     Dates: start: 20181023
  19. AMOXICILLIN [AMOXICILLIN SODIUM] [Concomitant]
     Active Substance: AMOXICILLIN SODIUM
     Dosage: 100 MG, 2X/DAY (2 TABS BID )
  20. INFLECTRA [Suspect]
     Active Substance: INFLIXIMAB-DYYB
     Indication: CROHN^S DISEASE
     Dosage: 5 MG/KG (400 MG) ON WEEK 0, 2, 6 THEN EVERY 8 WEEKS
     Route: 042
     Dates: start: 20180202, end: 20180202
  21. INFLECTRA [Suspect]
     Active Substance: INFLIXIMAB-DYYB
     Dosage: 5 MG/KG (400 MG) ON WEEK 0, 2, 6 THEN EVERY 8 WEEKS
     Route: 042
     Dates: start: 20180511, end: 20180511
  22. INFLECTRA [Suspect]
     Active Substance: INFLIXIMAB-DYYB
     Dosage: 5 MG/KG (400 MG) ON WEEK 0, 2, 6 THEN EVERY 8 WEEKS
     Route: 042
     Dates: start: 20180907, end: 20180907
  23. INFLECTRA [Suspect]
     Active Substance: INFLIXIMAB-DYYB
     Dosage: 10 MG/KG, EVERY 6 WEEKS
     Route: 042
     Dates: start: 20190814
  24. PREDNISONE. [Concomitant]
     Active Substance: PREDNISONE
     Dosage: 10 MG, DAILY (2 TABS DIE )
  25. PREDNISONE. [Concomitant]
     Active Substance: PREDNISONE
     Dosage: 10 MG, DAILY (2 TABS DIE )
  26. SULFATRIM [Concomitant]
     Active Substance: SULFAMETHOXAZOLE\TRIMETHOPRIM
     Dosage: 800+160 MG, 1 TAB BID (2XDAY) 3 TIMES PER WEEK
  27. INFLECTRA [Suspect]
     Active Substance: INFLIXIMAB-DYYB
     Dosage: 7.5 MG/KG, EVERY 8 WEEKS
     Route: 042
     Dates: start: 20181102, end: 20181102
  28. INFLECTRA [Suspect]
     Active Substance: INFLIXIMAB-DYYB
     Dosage: 10 MG/KG, EVERY 6 WEEKS
     Route: 042
     Dates: start: 20190628
  29. SALBUTAMOL TEVA [Concomitant]
     Active Substance: ALBUTEROL
     Dosage: 2 DF (INHALATION), 4X/DAY
     Route: 055
  30. JAMP-CALCIUM + VITAMIN D [Concomitant]
     Dosage: 500 MG/400 IU (1 TABLET), 2X/DAY
     Route: 048
  31. CORTISONE [Concomitant]
     Active Substance: CORTISONE
     Dosage: UNK
     Dates: start: 20171220
  32. INFLECTRA [Suspect]
     Active Substance: INFLIXIMAB-DYYB
     Indication: ANKYLOSING SPONDYLITIS
     Dosage: 5 MG/KG (400 MG) ON WEEK 0, 2, 6 THEN EVERY 8 WEEKS
     Route: 042
     Dates: start: 20180316, end: 20180316
  33. APO-VALACYCLOVIR [Concomitant]
     Active Substance: VALACYCLOVIR HYDROCHLORIDE
     Dosage: 500MG 4 TABLETS EVERY 12 HOURS (FOR 2 DAYS
     Route: 048
  34. JAMP-PANTOPRAZOLE [Concomitant]
     Indication: GASTRIC DISORDER
     Dosage: 40 MG, 1X/DAY (BEFORE BREAKFAST)
     Route: 048
  35. APO-TRAMADOL [Concomitant]
     Active Substance: TRAMADOL
     Dosage: 25-50 MG (0.5 TO 1 TABLET) 3X/DAILY (EVERY 8 HOURS)
     Route: 048
  36. CORTISONE [Concomitant]
     Active Substance: CORTISONE
     Dosage: 60 MG, DECREASING DOSE
     Dates: start: 201810
  37. AMOXICILLIN [AMOXICILLIN SODIUM] [Concomitant]
     Active Substance: AMOXICILLIN SODIUM
     Dosage: 100 MG, 2X/DAY (2 TABS BID )
  38. SULFATRIM [Concomitant]
     Active Substance: SULFAMETHOXAZOLE\TRIMETHOPRIM
     Dosage: 800+160 MG, 1 TAB BID (2XDAY) 3 TIMES PER WEEK

REACTIONS (15)
  - Myalgia [Not Recovered/Not Resolved]
  - Feeling hot [Recovered/Resolved]
  - Flushing [Not Recovered/Not Resolved]
  - Off label use [Unknown]
  - Hepatic enzyme increased [Not Recovered/Not Resolved]
  - Blood iron increased [Not Recovered/Not Resolved]
  - Arthralgia [Unknown]
  - Headache [Unknown]
  - Autoimmune hepatitis [Unknown]
  - Drug ineffective [Not Recovered/Not Resolved]
  - Arthritis [Unknown]
  - Fatigue [Unknown]
  - Condition aggravated [Not Recovered/Not Resolved]
  - Nausea [Recovering/Resolving]
  - Erythema [Not Recovered/Not Resolved]

NARRATIVE: CASE EVENT DATE: 2018
